FAERS Safety Report 5891587-0 (Version None)
Quarter: 2008Q3

REPORT INFORMATION
  Report Type: 
  Country: None (occurrence: None)
  Receive Date: 20080922
  Receipt Date: 20080909
  Transmission Date: 20090109
  Serious: Yes (Other)
  Sender: FDA-Public Use
  Company Number: FR-ROCHE-586516

PATIENT
  Age: 18 Year
  Sex: Female

DRUGS (1)
  1. LARIAM [Suspect]
     Indication: MALARIA PROPHYLAXIS
     Route: 065
     Dates: end: 20080829

REACTIONS (6)
  - EUPHORIC MOOD [None]
  - HALLUCINATION [None]
  - NAUSEA [None]
  - PERSECUTORY DELUSION [None]
  - PYREXIA [None]
  - VOMITING [None]
